FAERS Safety Report 9321355 (Version 2)
Quarter: 2013Q4

REPORT INFORMATION
  Report Type: Spontaneous
  Country: IT (occurrence: IT)
  Receive Date: 20130531
  Receipt Date: 20131015
  Transmission Date: 20140711
  Serious: Yes (Hospitalization)
  Sender: FDA-Public Use
  Company Number: IT-PFIZER INC-2013165434

PATIENT
  Age: 67 Year
  Sex: Female

DRUGS (2)
  1. CELEBREX [Suspect]
     Indication: ARTHRALGIA
     Dosage: 100 MG, AS NEEDED
     Route: 048
     Dates: start: 20130126, end: 20130126
  2. OKI [Suspect]
     Indication: ARTHRALGIA
     Dosage: 80 MG, AS NEEDED
     Route: 048
     Dates: start: 20130126, end: 20130126

REACTIONS (3)
  - Dyspnoea [Recovered/Resolved with Sequelae]
  - Loss of consciousness [Recovered/Resolved with Sequelae]
  - Syncope [Recovered/Resolved with Sequelae]
